FAERS Safety Report 14129341 (Version 2)
Quarter: 2018Q1

REPORT INFORMATION
  Report Type: Spontaneous
  Country: US (occurrence: US)
  Receive Date: 20171026
  Receipt Date: 20180202
  Transmission Date: 20180508
  Serious: Yes (Other)
  Sender: FDA-Public Use
  Company Number: US-BAYER-2017-205368

PATIENT
  Age: 18 Year
  Sex: Female
  Weight: 52.6 kg

DRUGS (3)
  1. MIRENA [Suspect]
     Active Substance: LEVONORGESTREL
     Indication: CONTRACEPTION
     Dosage: 20 MCG/24HR, CONT
     Route: 015
     Dates: start: 20170925
  2. FLUTICASONE PROPIONATE. [Concomitant]
     Active Substance: FLUTICASONE PROPIONATE
     Dosage: 50 MG, UNK
  3. MIRENA [Suspect]
     Active Substance: LEVONORGESTREL
     Dosage: UNK
     Dates: start: 20170925

REACTIONS (2)
  - Vaginal haemorrhage [None]
  - Device dislocation [None]

NARRATIVE: CASE EVENT DATE: 20171023
